FAERS Safety Report 7293562-0 (Version None)
Quarter: 2011Q1

REPORT INFORMATION
  Report Type: 
  Country: None (occurrence: None)
  Receive Date: 20110215
  Receipt Date: 20110209
  Transmission Date: 20110831
  Serious: Yes (Death, Hospitalization, Other)
  Sender: FDA-Public Use
  Company Number: JP-GENZYME-THYM-1002260

PATIENT
  Sex: Male
  Weight: 62 kg

DRUGS (29)
  1. METHYLPREDNISOLONE SODIUM SUCCINATE [Concomitant]
     Indication: PREMEDICATION
     Dosage: UNK
     Dates: start: 20090831, end: 20090902
  2. TACROLIMUS [Concomitant]
     Dosage: UNK
     Dates: start: 20091010, end: 20091216
  3. ITRACONAZOLE [Concomitant]
     Indication: ANTIFUNGAL PROPHYLAXIS
     Dosage: UNK
     Dates: start: 20090823, end: 20090830
  4. CIPROFLOXACIN HYDROCHLORIDE [Concomitant]
     Indication: ANTIFUNGAL PROPHYLAXIS
     Dosage: UNK
     Dates: start: 20090823, end: 20090909
  5. THYMOGLOBULIN [Suspect]
     Indication: BONE MARROW CONDITIONING REGIMEN
     Dosage: 125 MG, QD
     Route: 042
     Dates: start: 20090831, end: 20090902
  6. MEROPENEM TRIHYDRATE [Concomitant]
     Dosage: UNK
     Dates: start: 20091218, end: 20091227
  7. BACTRIM [Concomitant]
     Indication: ANTIFUNGAL PROPHYLAXIS
     Dosage: UNK
     Dates: start: 20090825, end: 20090901
  8. TOTAL BODY IRRADIATION [Concomitant]
     Indication: ACUTE MYELOID LEUKAEMIA
     Dosage: UNK
     Dates: start: 20090823, end: 20090827
  9. AZASETRON HYDROCHLORIDE [Concomitant]
     Indication: PROPHYLAXIS OF NAUSEA AND VOMITING
     Dosage: UNK
     Dates: start: 20090831, end: 20090901
  10. HAPTOGLOBINS [Concomitant]
     Indication: ACUTE MYELOID LEUKAEMIA
     Dosage: UNK
     Dates: start: 20090903, end: 20090903
  11. AMIKACIN SULFATE [Concomitant]
     Indication: ACUTE MYELOID LEUKAEMIA
     Dosage: UNK
     Dates: start: 20090917, end: 20090925
  12. DORIPENEM HYDRATE [Concomitant]
     Indication: ACUTE MYELOID LEUKAEMIA
     Dosage: UNK
     Dates: start: 20090926, end: 20091001
  13. ITRACONAZOLE [Concomitant]
     Dosage: UNK
     Dates: start: 20091022, end: 20100120
  14. VORICONAZOLE [Concomitant]
     Indication: ANTIFUNGAL PROPHYLAXIS
     Dosage: UNK
     Dates: start: 20090929, end: 20091021
  15. MESNA [Concomitant]
     Indication: PROPHYLAXIS
     Dosage: UNK
     Dates: start: 20090831, end: 20090901
  16. TACROLIMUS [Concomitant]
     Indication: PROPHYLAXIS AGAINST GRAFT VERSUS HOST DISEASE
     Dosage: UNK
     Dates: start: 20090901, end: 20091010
  17. METHOTREXATE [Concomitant]
     Indication: PROPHYLAXIS
     Dosage: UNK
     Dates: start: 20090904, end: 20090909
  18. CEFEPIME HYDROCHLORIDE [Concomitant]
     Indication: ACUTE MYELOID LEUKAEMIA
     Dosage: UNK
     Dates: start: 20090910, end: 20090915
  19. CEFEPIME HYDROCHLORIDE [Concomitant]
     Dosage: UNK
     Dates: start: 20091116, end: 20091201
  20. CEFEPIME HYDROCHLORIDE [Concomitant]
     Dosage: UNK
     Dates: start: 20091204, end: 20091218
  21. HYDROCORTISONE SODIUM SUCCINATE [Concomitant]
     Indication: ACUTE MYELOID LEUKAEMIA
     Dosage: UNK
     Dates: start: 20090910, end: 20091218
  22. MEROPENEM TRIHYDRATE [Concomitant]
     Indication: ACUTE MYELOID LEUKAEMIA
     Dosage: UNK
     Dates: start: 20090915, end: 20090925
  23. AMPHOTERICIN B [Concomitant]
     Indication: ACUTE MYELOID LEUKAEMIA
     Dosage: UNK
     Dates: start: 20090915, end: 20090924
  24. FAMOTIDINE [Concomitant]
     Indication: ACUTE MYELOID LEUKAEMIA
     Dosage: UNK
     Dates: start: 20090513, end: 20100202
  25. FOSCARNET SODIUM [Concomitant]
     Indication: ANTIVIRAL PROPHYLAXIS
     Dosage: UNK
     Dates: start: 20090910, end: 20090923
  26. ACICLOVIR [Concomitant]
     Indication: ANTIVIRAL PROPHYLAXIS
     Dosage: UNK
     Dates: start: 20090823, end: 20090909
  27. CYCLOPHOSPHAMIDE [Concomitant]
     Indication: ACUTE MYELOID LEUKAEMIA
     Dosage: UNK
     Dates: start: 20090831, end: 20090901
  28. MICAFUNGIN SODIUM [Concomitant]
     Indication: ANTIFUNGAL PROPHYLAXIS
     Dosage: UNK
     Dates: start: 20090831, end: 20090914
  29. FILGRASTIM [Concomitant]
     Indication: ACUTE MYELOID LEUKAEMIA
     Dosage: UNK
     Dates: start: 20090904, end: 20090921

REACTIONS (4)
  - ACUTE MYELOID LEUKAEMIA RECURRENT [None]
  - ACUTE GRAFT VERSUS HOST DISEASE IN SKIN [None]
  - STAPHYLOCOCCAL INFECTION [None]
  - SEPSIS [None]
